FAERS Safety Report 16271208 (Version 1)
Quarter: 2019Q2

REPORT INFORMATION
  Report Type: Spontaneous
  Country: ID (occurrence: ID)
  Receive Date: 20190503
  Receipt Date: 20190503
  Transmission Date: 20190711
  Serious: Yes (Other)
  Sender: FDA-Public Use
  Company Number: ID-ASTRAZENECA-2019SE64858

PATIENT
  Sex: Male

DRUGS (1)
  1. TAGRISSO [Suspect]
     Active Substance: OSIMERTINIB
     Indication: NON-SMALL CELL LUNG CANCER METASTATIC
     Route: 048
     Dates: start: 20190402

REACTIONS (6)
  - Cardiotoxicity [Unknown]
  - Cough [Unknown]
  - Pyrexia [Unknown]
  - Ejection fraction decreased [Unknown]
  - Interstitial lung disease [Unknown]
  - Dyspnoea exertional [Unknown]
